FAERS Safety Report 15752685 (Version 2)
Quarter: 2018Q4

REPORT INFORMATION
  Report Type: Spontaneous
  Country: US (occurrence: US)
  Receive Date: 20181221
  Receipt Date: 20181227
  Transmission Date: 20190205
  Serious: No
  Sender: FDA-Public Use
  Company Number: US-BEH-2018097831

PATIENT
  Age: 35 Year
  Sex: Female

DRUGS (1)
  1. HIZENTRA [Suspect]
     Active Substance: HUMAN IMMUNOGLOBULIN G
     Indication: PRIMARY IMMUNODEFICIENCY SYNDROME
     Dosage: UNK, QOW
     Route: 058
     Dates: start: 201810, end: 20181214

REACTIONS (4)
  - Mouth swelling [Unknown]
  - Dyspnoea [Unknown]
  - Urticaria [Unknown]
  - Stomatitis [Unknown]
